FAERS Safety Report 14560517 (Version 1)
Quarter: 2018Q1

REPORT INFORMATION
  Report Type: Spontaneous
  Country: US (occurrence: US)
  Receive Date: 20180222
  Receipt Date: 20180222
  Transmission Date: 20180509
  Serious: Yes (Death, Other)
  Sender: FDA-Public Use
  Company Number: US-009507513-1802USA010133

PATIENT
  Sex: Female

DRUGS (24)
  1. DILAUDID [Suspect]
     Active Substance: HYDROMORPHONE HYDROCHLORIDE
     Indication: PAIN
     Dosage: UNK, QD
  2. IMITREX [Suspect]
     Active Substance: SUMATRIPTAN SUCCINATE
     Indication: MIGRAINE
     Dosage: UNK, PRN
  3. KLOR-CON [Suspect]
     Active Substance: POTASSIUM CHLORIDE
     Indication: BLOOD POTASSIUM DECREASED
     Dosage: 1 DF, BID
  4. COMPAZINE [Suspect]
     Active Substance: PROCHLORPERAZINE MALEATE
  5. SINGULAIR [Suspect]
     Active Substance: MONTELUKAST SODIUM
     Indication: HYPERSENSITIVITY
  6. CARDIZEM [Suspect]
     Active Substance: DILTIAZEM HYDROCHLORIDE
  7. PROTONIX [Suspect]
     Active Substance: PANTOPRAZOLE SODIUM
  8. LYRICA [Suspect]
     Active Substance: PREGABALIN
     Indication: PAIN
     Dosage: UNK, QD
  9. MACRODANTIN [Suspect]
     Active Substance: NITROFURANTOIN
  10. RITALIN [Suspect]
     Active Substance: METHYLPHENIDATE HYDROCHLORIDE
     Indication: NARCOLEPSY
     Dosage: UNK, QD
  11. GRASTEK [Suspect]
     Active Substance: PHLEUM PRATENSE POLLEN
     Indication: HYPERSENSITIVITY
  12. CLONIDINE. [Suspect]
     Active Substance: CLONIDINE
  13. CYANOCOBALAMIN. [Suspect]
     Active Substance: CYANOCOBALAMIN
  14. DITROPAN [Suspect]
     Active Substance: OXYBUTYNIN CHLORIDE
  15. VIVARIN [Concomitant]
     Active Substance: CAFFEINE
  16. FOSAMAX [Suspect]
     Active Substance: ALENDRONATE SODIUM
  17. VITAMIN D [Suspect]
     Active Substance: CHOLECALCIFEROL
  18. SYNTHROID [Suspect]
     Active Substance: LEVOTHYROXINE SODIUM
  19. CYSTEX (ACRIFLAVINE HYDROCHLORIDE (+) BELLADONNA (+) METHENAMINE (+) M [Concomitant]
  20. XYREM [Suspect]
     Active Substance: SODIUM OXYBATE
     Indication: NARCOLEPSY
     Dosage: HS, NIGHTLY
  21. LIDODERM [Suspect]
     Active Substance: LIDOCAINE
     Indication: PAIN
     Dosage: UNK, PRN
  22. TYLENOL COLD AND FLU (ACETAMINOPHEN (+) CHLORPHENIRAMINE MALEATE (+) D [Concomitant]
     Dosage: UNK
     Dates: start: 20171219
  23. PATANOL [Suspect]
     Active Substance: OLOPATADINE HYDROCHLORIDE
     Indication: HYPERSENSITIVITY
  24. TOPAMAX [Suspect]
     Active Substance: TOPIRAMATE

REACTIONS (1)
  - Death [Fatal]
